FAERS Safety Report 8890045 (Version 1)
Quarter: 2012Q4

REPORT INFORMATION
  Report Type: 
  Country: CA (occurrence: CA)
  Receive Date: 20121106
  Receipt Date: 20121106
  Transmission Date: 20130627
  Serious: Yes (Hospitalization)
  Sender: FDA-Public Use
  Company Number: PHHY2008CA00854

PATIENT
  Sex: Male
  Weight: 144 kg

DRUGS (2)
  1. VOLTAREN [Suspect]
     Route: 065
  2. ZOMETA [Suspect]
     Indication: PROSTATE CANCER
     Dosage: 4 mg, QMO
     Route: 042
     Dates: start: 20070906

REACTIONS (6)
  - Arthralgia [Unknown]
  - Back pain [Unknown]
  - Dizziness [Unknown]
  - Decreased appetite [Unknown]
  - Drug ineffective [Unknown]
  - Blood creatinine increased [Unknown]
